FAERS Safety Report 24181068 (Version 2)
Quarter: 2024Q3

REPORT INFORMATION
  Report Type: Report from Study
  Country: CZ (occurrence: CZ)
  Receive Date: 20240806
  Receipt Date: 20240826
  Transmission Date: 20241017
  Serious: Yes (Other)
  Sender: ABBVIE
  Company Number: CZ-ABBVIE-5864182

PATIENT
  Age: 68 Year
  Sex: Male
  Weight: 90 kg

DRUGS (5)
  1. CARBIDOPA\LEVODOPA [Suspect]
     Active Substance: CARBIDOPA\LEVODOPA
     Indication: Parkinson^s disease
     Dosage: MORNING DOSE 11 ML, CONTINUOUS DOSE 6.9 ML/HOUR, EXTRA DOSE 1.5 ML,?FORM STRENGTH:20 MILLIGRAM/MI...
     Route: 050
     Dates: start: 20230612
  2. CARBIDOPA\LEVODOPA [Suspect]
     Active Substance: CARBIDOPA\LEVODOPA
  3. BENSERAZIDE HYDROCHLORIDE\LEVODOPA [Suspect]
     Active Substance: BENSERAZIDE HYDROCHLORIDE\LEVODOPA
     Indication: Product used for unknown indication
     Route: 065
     Dates: end: 20240516
  4. FOLIC ACID [Concomitant]
     Active Substance: FOLIC ACID
     Indication: Blood folate decreased
     Route: 048
     Dates: start: 20230612
  5. VITAMIN B-KOMPLEX FORTE [Concomitant]
     Indication: Vitamin D decreased
     Route: 048
     Dates: start: 20230612

REACTIONS (11)
  - Seizure [Recovered/Resolved]
  - Discomfort [Recovered/Resolved]
  - Anxiety [Recovered/Resolved]
  - Unevaluable event [Recovered/Resolved]
  - Shock [Recovered/Resolved]
  - Feeling abnormal [Recovered/Resolved]
  - Restlessness [Recovered/Resolved]
  - Agitation [Recovered/Resolved]
  - Tremor [Recovered/Resolved]
  - Musculoskeletal stiffness [Recovered/Resolved]
  - Wrong product administered [Recovered/Resolved]

NARRATIVE: CASE EVENT DATE: 20240523
